FAERS Safety Report 12795349 (Version 1)
Quarter: 2016Q3

REPORT INFORMATION
  Report Type: Spontaneous
  Country: ES (occurrence: ES)
  Receive Date: 20160929
  Receipt Date: 20160929
  Transmission Date: 20161109
  Serious: Yes (Hospitalization)
  Sender: FDA-Public Use
  Company Number: ES-NOVOPROD-506306

PATIENT
  Sex: Male

DRUGS (4)
  1. TRESIBA [Suspect]
     Active Substance: INSULIN DEGLUDEC
     Dosage: THREE DOSES MORNING/MID AFTERNOON/NIGHT
     Route: 065
  2. HUMALOG [Concomitant]
     Active Substance: INSULIN LISPRO
  3. TRESIBA [Suspect]
     Active Substance: INSULIN DEGLUDEC
     Indication: PRODUCT USED FOR UNKNOWN INDICATION
     Dosage: 90 U, QD (IN THE MORNINGS)
     Route: 065
  4. TRESIBA [Suspect]
     Active Substance: INSULIN DEGLUDEC
     Dosage: 94 U, QD (MORNINGS)
     Route: 065

REACTIONS (4)
  - Intentional product misuse [Unknown]
  - Blood glucose increased [Recovered/Resolved]
  - Diabetes mellitus inadequate control [Unknown]
  - Gastric cancer [Unknown]

NARRATIVE: CASE EVENT DATE: 20160914
